FAERS Safety Report 5132221-7 (Version None)
Quarter: 2006Q4

REPORT INFORMATION
  Report Type: 
  Country: None (occurrence: None)
  Receive Date: 20061017
  Receipt Date: 20060928
  Transmission Date: 20070319
  Serious: Yes (Other)
  Sender: FDA-Public Use
  Company Number: US200608002014

PATIENT
  Age: 11 Year
  Sex: Male
  Weight: 36.3 kg

DRUGS (1)
  1. STRATTERA [Suspect]
     Indication: ATTENTION DEFICIT/HYPERACTIVITY DISORDER
     Dosage: 40 MG, DAILY (1/D)

REACTIONS (4)
  - AGITATION [None]
  - CONFUSIONAL STATE [None]
  - GRAND MAL CONVULSION [None]
  - POSTICTAL STATE [None]
